FAERS Safety Report 12438258 (Version 1)
Quarter: 2016Q2

REPORT INFORMATION
  Report Type: Spontaneous
  Country: JP (occurrence: JP)
  Receive Date: 20160606
  Receipt Date: 20160606
  Transmission Date: 20160815
  Serious: Yes (Hospitalization)
  Sender: FDA-Public Use
  Company Number: JP-BAYER-2016-104620

PATIENT
  Age: 60 Year
  Sex: Male

DRUGS (4)
  1. LANSOPRAZOLE. [Concomitant]
     Active Substance: LANSOPRAZOLE
     Route: 048
  2. CLOPIDOGREL SULFATE [Concomitant]
     Active Substance: CLOPIDOGREL BISULFATE
     Dosage: UNK
     Route: 048
  3. ACETYLSALICYLIC ACID({=100 MG) [Suspect]
     Active Substance: ASPIRIN
     Route: 048
  4. URSODEOXYCHOLIC ACID [Concomitant]
     Active Substance: URSODIOL
     Route: 048

REACTIONS (1)
  - Pulmonary toxicity [Recovered/Resolved]
